FAERS Safety Report 7479552-3 (Version None)
Quarter: 2011Q2

REPORT INFORMATION
  Report Type: 
  Country: None (occurrence: None)
  Receive Date: 20110513
  Receipt Date: 20110503
  Transmission Date: 20111010
  Serious: Yes (Other)
  Sender: FDA-Public Use
  Company Number: GB-ALLERGAN-1106432US

PATIENT
  Age: 63 Year
  Sex: Female

DRUGS (7)
  1. OMEPRAZOLE [Concomitant]
     Indication: GASTRITIS
     Dosage: 20 MG, QD
     Route: 048
     Dates: start: 20090623
  2. BUTRANS [Suspect]
     Indication: POLYARTHRITIS
     Dosage: 10 A?G/HOUR, QD
     Route: 062
     Dates: start: 20090827, end: 20100819
  3. CALCICHEW D3 FORTE [Concomitant]
     Indication: OSTEOPENIA
     Dosage: 1 DF, UNK
     Route: 048
  4. BOTOX [Suspect]
     Indication: DYSTONIA
     Dosage: UNK
     Route: 042
     Dates: start: 20080601, end: 20080601
  5. BUPRENORPHINE [Concomitant]
     Indication: POLYARTHRITIS
     Dosage: 200 A?G, UNK
     Route: 060
  6. PAROXETINE HCL [Concomitant]
     Indication: DEPRESSION
     Dosage: 10 MG, QD
     Dates: start: 20080917
  7. LEVOTHYROXINE SODIUM [Concomitant]
     Indication: HYPOTHYROIDISM
     Dosage: 75 A?G, QD
     Route: 048
     Dates: start: 20060328

REACTIONS (2)
  - DRUG INTERACTION [None]
  - DYSPHAGIA [None]
